FAERS Safety Report 6318538-9 (Version None)
Quarter: 2009Q3

REPORT INFORMATION
  Report Type: 
  Country: None (occurrence: None)
  Receive Date: 20090819
  Receipt Date: 20090804
  Transmission Date: 20100115
  Serious: Yes (Other)
  Sender: FDA-Public Use
  Company Number: 2009-1797

PATIENT
  Age: 10 Year
  Sex: Male

DRUGS (1)
  1. INCRELEX [Suspect]
     Indication: INSULIN-LIKE GROWTH FACTOR DECREASED
     Dosage: 29 IEX2 (NOT REPORTED) SUBCUTANEOUS
     Route: 058
     Dates: start: 20080514, end: 20090410

REACTIONS (2)
  - LIPOHYPERTROPHY [None]
  - SKIN HYPERTROPHY [None]
